FAERS Safety Report 4990352-6 (Version None)
Quarter: 2006Q2

REPORT INFORMATION
  Report Type: 
  Country: None (occurrence: None)
  Receive Date: 20060502
  Receipt Date: 20060502
  Transmission Date: 20061013
  Serious: Yes (Death)
  Sender: FDA-Public Use
  Company Number: None

PATIENT
  Age: 80 Year
  Sex: Male
  Weight: 85.7298 kg

DRUGS (1)
  1. KETEK [Suspect]
     Indication: UPPER RESPIRATORY TRACT INFECTION
     Dosage: 800 MG TWICE DAILY PO [4 DOSES]
     Route: 048

REACTIONS (9)
  - AORTIC ANEURYSM RUPTURE [None]
  - COAGULOPATHY [None]
  - EPISTAXIS [None]
  - FALL [None]
  - FLUID RETENTION [None]
  - INSOMNIA [None]
  - LOSS OF CONSCIOUSNESS [None]
  - MALAISE [None]
  - ORAL INTAKE REDUCED [None]
